FAERS Safety Report 8219180-5 (Version None)
Quarter: 2012Q1

REPORT INFORMATION
  Report Type: 
  Country: None (occurrence: None)
  Receive Date: 20120307
  Receipt Date: 20091113
  Transmission Date: 20120608
  Serious: Yes (Other)
  Sender: FDA-Public Use
  Company Number: PHEH2009US16033

PATIENT
  Age: 65 Year
  Sex: Female

DRUGS (4)
  1. CALCIUM CARBONATE [Concomitant]
  2. AFINITOR [Suspect]
     Dosage: 10 MG
  3. VITAMIN D [Concomitant]
  4. FENTANYL [Concomitant]

REACTIONS (1)
  - HAEMORRHAGE [None]
